FAERS Safety Report 11929414 (Version 1)
Quarter: 2016Q1

REPORT INFORMATION
  Report Type: Spontaneous
  Country: GB (occurrence: GB)
  Receive Date: 20160120
  Receipt Date: 20160120
  Transmission Date: 20160526
  Serious: Yes (Hospitalization, Other)
  Sender: FDA-Public Use
  Company Number: GB-009507513-1601GBR006311

PATIENT
  Age: 89 Year
  Sex: Female
  Weight: 45.6 kg

DRUGS (13)
  1. LACTULOSE. [Concomitant]
     Active Substance: LACTULOSE
  2. MIRTAZAPINE. [Suspect]
     Active Substance: MIRTAZAPINE
     Dosage: EVERY NIGHT
     Route: 048
     Dates: end: 20151224
  3. ALENDRONATE SODIUM. [Concomitant]
     Active Substance: ALENDRONATE SODIUM
  4. FERROUS SULFATE [Concomitant]
     Active Substance: FERROUS SULFATE\FERROUS SULFATE, DRIED
  5. ACETAMINOPHEN. [Concomitant]
     Active Substance: ACETAMINOPHEN
  6. TRAMADOL HYDROCHLORIDE. [Concomitant]
     Active Substance: TRAMADOL HYDROCHLORIDE
  7. FUROSEMIDE. [Suspect]
     Active Substance: FUROSEMIDE
     Dosage: EVERY MORNING
     Route: 048
     Dates: end: 20151224
  8. DIGOXIN. [Concomitant]
     Active Substance: DIGOXIN
  9. LANSOPRAZOLE. [Suspect]
     Active Substance: LANSOPRAZOLE
     Dosage: EVERY MORNING
     Route: 048
     Dates: end: 20151224
  10. ANASTROZOLE. [Concomitant]
     Active Substance: ANASTROZOLE
  11. BUTRANS [Concomitant]
     Active Substance: BUPRENORPHINE
  12. CALCICHEW D3 [Concomitant]
     Active Substance: CALCIUM\CHOLECALCIFEROL
  13. WARFARIN [Concomitant]
     Active Substance: WARFARIN

REACTIONS (1)
  - Hyponatraemia [Recovering/Resolving]
